FAERS Safety Report 7366341-3 (Version None)
Quarter: 2011Q1

REPORT INFORMATION
  Report Type: 
  Country: None (occurrence: None)
  Receive Date: 20110225
  Receipt Date: 20110113
  Transmission Date: 20110831
  Serious: Yes (Hospitalization)
  Sender: FDA-Public Use
  Company Number: 318988

PATIENT
  Age: 30 Year
  Sex: Female
  Weight: 66.2 kg

DRUGS (8)
  1. THEOPHYLLINE [Concomitant]
  2. TRAMADOL HCL [Concomitant]
  3. VICTOZA [Suspect]
     Indication: TYPE 2 DIABETES MELLITUS
     Dosage: SUBCUTANEOUS, 1.2 MG, QD, SUBCUTANEOUS
     Route: 058
     Dates: end: 20101122
  4. VICTOZA [Suspect]
     Indication: TYPE 2 DIABETES MELLITUS
     Dosage: SUBCUTANEOUS, 1.2 MG, QD, SUBCUTANEOUS
     Route: 058
     Dates: start: 20100614
  5. ADVAIR DISKUS 100/50 [Concomitant]
  6. PREDNISONE [Concomitant]
  7. METFORMIN HCL [Concomitant]
  8. XANAX [Concomitant]

REACTIONS (1)
  - PANCREATITIS CHRONIC [None]
